FAERS Safety Report 7487042-7 (Version None)
Quarter: 2011Q2

REPORT INFORMATION
  Report Type: 
  Country: None (occurrence: None)
  Receive Date: 20110518
  Receipt Date: 20110506
  Transmission Date: 20111010
  Serious: Yes (Hospitalization, Other)
  Sender: FDA-Public Use
  Company Number: NL-BIOGENIDEC-2011BI002033

PATIENT
  Age: 50 Year
  Sex: Female
  Weight: 46 kg

DRUGS (11)
  1. OMEPRAZOLE [Concomitant]
  2. TYSABRI [Suspect]
     Indication: RELAPSING-REMITTING MULTIPLE SCLEROSIS
     Route: 042
     Dates: start: 20080725, end: 20101217
  3. ACETAMINOPHEN [Concomitant]
  4. DIAZEPAM [Concomitant]
  5. BETAHISTINE [Concomitant]
  6. BACLOFEN [Concomitant]
     Dates: start: 20100101
  7. PAROXETINE HCL [Concomitant]
  8. BACLOFEN [Concomitant]
     Dates: start: 20110101
  9. ZOPICLON [Concomitant]
  10. ZOLPIDEM [Concomitant]
  11. NAPROXEN [Concomitant]

REACTIONS (2)
  - IMMUNE RECONSTITUTION SYNDROME [None]
  - PROGRESSIVE MULTIFOCAL LEUKOENCEPHALOPATHY [None]
